FAERS Safety Report 7155328-1 (Version None)
Quarter: 2010Q4

REPORT INFORMATION
  Report Type: 
  Country: None (occurrence: None)
  Receive Date: 20101214
  Receipt Date: 20101203
  Transmission Date: 20110411
  Serious: Yes (Hospitalization)
  Sender: FDA-Public Use
  Company Number: US-BIOGENIDEC-2010BI037849

PATIENT
  Sex: Male

DRUGS (2)
  1. TYSABRI [Suspect]
     Indication: MULTIPLE SCLEROSIS
     Route: 042
     Dates: start: 20060914, end: 20071102
  2. TYSABRI [Suspect]
     Route: 042
     Dates: start: 20071204

REACTIONS (5)
  - ARTHRALGIA [None]
  - CHOLELITHIASIS [None]
  - PANCREATITIS [None]
  - PRURITUS [None]
  - SLEEP APNOEA SYNDROME [None]
